FAERS Safety Report 7231064-8 (Version None)
Quarter: 2011Q1

REPORT INFORMATION
  Report Type: 
  Country: None (occurrence: None)
  Receive Date: 20110118
  Receipt Date: 20110103
  Transmission Date: 20110831
  Serious: Yes (Death, Hospitalization)
  Sender: FDA-Public Use
  Company Number: FR-PFIZER INC-2008055093

PATIENT
  Age: 43 Year
  Sex: Male

DRUGS (4)
  1. TAZOCILLINE [Suspect]
     Indication: SEPTIC SHOCK
     Dosage: UNK
     Route: 042
     Dates: start: 20080110
  2. ZYVOX [Suspect]
     Indication: SEPTIC SHOCK
     Dosage: UNK
     Route: 042
     Dates: start: 20080110
  3. GARDENALE [Suspect]
     Indication: EPILEPSY
     Dosage: UNK
     Route: 042
  4. CEFTRIAXONE SODIUM [Concomitant]
     Dates: start: 20080101

REACTIONS (4)
  - THROMBOCYTOPENIA [None]
  - MULTI-ORGAN FAILURE [None]
  - CONDITION AGGRAVATED [None]
  - ANAEMIA [None]
